FAERS Safety Report 9440964 (Version 2)
Quarter: 2013Q3

REPORT INFORMATION
  Report Type: Spontaneous
  Country: US (occurrence: US)
  Receive Date: 20130805
  Receipt Date: 20130822
  Transmission Date: 20140515
  Serious: Yes (Other)
  Sender: FDA-Public Use
  Company Number: US-TEVA-422975USA

PATIENT
  Age: 24 Year
  Sex: Female
  Weight: 62.65 kg

DRUGS (3)
  1. PARAGARD 380A [Suspect]
     Indication: CONTRACEPTION
     Route: 015
     Dates: start: 20130708, end: 20130710
  2. ALBUTEROL SULFATE HFA [Concomitant]
     Route: 055
  3. MICRONOR 28 [Concomitant]
     Dosage: .35 MILLIGRAM DAILY;
     Route: 048

REACTIONS (3)
  - Device dislocation [Recovered/Resolved]
  - Pain [Unknown]
  - Procedural pain [Recovered/Resolved]
